FAERS Safety Report 15947574 (Version 2)
Quarter: 2019Q1

REPORT INFORMATION
  Report Type: Report from Study
  Country: CO (occurrence: CO)
  Receive Date: 20190211
  Receipt Date: 20190308
  Transmission Date: 20190417
  Serious: Yes (Other)
  Sender: FDA-Public Use
  Company Number: CO-JNJFOC-20190204891

PATIENT
  Sex: Male
  Weight: 90 kg

DRUGS (2)
  1. IMBRUVICA [Suspect]
     Active Substance: IBRUTINIB
     Indication: CHRONIC LYMPHOCYTIC LEUKAEMIA
     Route: 048
     Dates: start: 201902
  2. IMBRUVICA [Suspect]
     Active Substance: IBRUTINIB
     Indication: CHRONIC LYMPHOCYTIC LEUKAEMIA
     Route: 048
     Dates: start: 20160423, end: 201902

REACTIONS (4)
  - Off label use [Unknown]
  - Incorrect dose administered [Unknown]
  - Lung disorder [Not Recovered/Not Resolved]
  - Occult blood [Not Recovered/Not Resolved]

NARRATIVE: CASE EVENT DATE: 2017
